FAERS Safety Report 13234207 (Version 4)
Quarter: 2017Q3

REPORT INFORMATION
  Report Type: Spontaneous
  Country: JP (occurrence: JP)
  Receive Date: 20170215
  Receipt Date: 20170705
  Transmission Date: 20171127
  Serious: Yes (Other)
  Sender: FDA-Public Use
  Company Number: JP-GLAXOSMITHKLINE-JP2017JPN019132

PATIENT
  Age: 9 Decade
  Sex: Male

DRUGS (3)
  1. OLOPATADINE. [Concomitant]
     Active Substance: OLOPATADINE
     Indication: RHINITIS
     Dosage: UNK
  2. PRAVASTATIN SODIUM. [Concomitant]
     Active Substance: PRAVASTATIN SODIUM
     Indication: HYPERCHOLESTEROLAEMIA
     Dosage: UNK
  3. AVOLVE [Suspect]
     Active Substance: DUTASTERIDE
     Indication: BENIGN PROSTATIC HYPERPLASIA
     Dosage: 0.5 MG, QD
     Route: 048
     Dates: start: 201412, end: 20170314

REACTIONS (4)
  - Nipple pain [Recovering/Resolving]
  - Breast swelling [Recovering/Resolving]
  - Therapy cessation [Unknown]
  - Mastitis [Recovering/Resolving]

NARRATIVE: CASE EVENT DATE: 201607
